FAERS Safety Report 23549231 (Version 1)
Quarter: 2024Q1

REPORT INFORMATION
  Report Type: Spontaneous
  Country: US (occurrence: US)
  Receive Date: 20240221
  Receipt Date: 20240221
  Transmission Date: 20240410
  Serious: No
  Sender: FDA-Public Use
  Company Number: US-PFIZER INC-202400043092

PATIENT
  Age: 62 Year
  Sex: Female

DRUGS (8)
  1. IBRANCE [Suspect]
     Active Substance: PALBOCICLIB
     Dosage: 1 TABLET BY MOUTH DAILY FOR 21 DAYS ON THEN 7 DAYS OFF EACH 28 DAY CYCLE
     Route: 048
     Dates: start: 20161205
  2. AMITRIPTYLINE HYDROCHLORIDE [Concomitant]
     Active Substance: AMITRIPTYLINE HYDROCHLORIDE
     Dosage: UNK
  3. ATENOLOL [Concomitant]
     Active Substance: ATENOLOL
     Dosage: UNK
  4. CRANBERRY [Concomitant]
     Active Substance: CRANBERRY
     Dosage: UNK
  5. CYMBALTA [Concomitant]
     Active Substance: DULOXETINE HYDROCHLORIDE
     Dosage: UNK
  6. FASLODEX [Concomitant]
     Active Substance: FULVESTRANT
     Dosage: UNK
  7. POTASSIUM GLUCONATE [Concomitant]
     Active Substance: POTASSIUM GLUCONATE
     Dosage: UNK
  8. VITAMIN D3 [Concomitant]
     Active Substance: CHOLECALCIFEROL
     Dosage: UNK

REACTIONS (3)
  - Arthralgia [Recovering/Resolving]
  - Blood potassium decreased [Recovering/Resolving]
  - Full blood count decreased [Recovering/Resolving]
